FAERS Safety Report 13270265 (Version 1)
Quarter: 2017Q1

REPORT INFORMATION
  Report Type: Report from Study
  Country: ZA (occurrence: ZA)
  Receive Date: 20170224
  Receipt Date: 20170224
  Transmission Date: 20170428
  Serious: Yes (Other)
  Sender: FDA-Public Use
  Company Number: ZA-GLAXOSMITHKLINE-ZA2015GSK151477

PATIENT
  Sex: Female

DRUGS (2)
  1. PARACETAMOL + ASPIRIN + CAFFEINE [Suspect]
     Active Substance: ACETAMINOPHEN\ASPIRIN\CAFFEINE
     Indication: HEADACHE
  2. PARACETAMOL + ASPIRIN + CAFFEINE [Suspect]
     Active Substance: ACETAMINOPHEN\ASPIRIN\CAFFEINE
     Indication: DYSMENORRHOEA

REACTIONS (1)
  - Dependence [Recovered/Resolved]
